FAERS Safety Report 23738142 (Version 7)
Quarter: 2024Q3

REPORT INFORMATION
  Report Type: Spontaneous
  Country: US (occurrence: US)
  Receive Date: 20240412
  Receipt Date: 20240925
  Transmission Date: 20241017
  Serious: No
  Sender: DAIICHI
  Company Number: US-DAIICHI SANKYO, INC.-DSU-2024-116468AA

PATIENT
  Sex: Female

DRUGS (2)
  1. TURALIO [Suspect]
     Active Substance: PEXIDARTINIB HYDROCHLORIDE
     Indication: Connective tissue neoplasm
     Dosage: 125 MG, TID, (1 IN THE MORNING AND 2 IN THE EVENING)
     Route: 048
     Dates: start: 20240316
  2. TURALIO [Suspect]
     Active Substance: PEXIDARTINIB HYDROCHLORIDE
     Indication: Soft tissue neoplasm
     Dosage: 250 MG, BID
     Route: 048
     Dates: start: 20240329

REACTIONS (7)
  - Nephrolithiasis [Not Recovered/Not Resolved]
  - Dizziness [Recovered/Resolved]
  - White blood cell count decreased [Recovered/Resolved]
  - Nausea [Recovered/Resolved]
  - Hypertension [Recovered/Resolved]
  - Drug ineffective [Unknown]
  - Intentional product use issue [Recovered/Resolved]
